FAERS Safety Report 13580830 (Version 3)
Quarter: 2017Q4

REPORT INFORMATION
  Report Type: Spontaneous
  Country: US (occurrence: US)
  Receive Date: 20170525
  Receipt Date: 20171127
  Transmission Date: 20180320
  Serious: Yes (Other)
  Sender: FDA-Public Use
  Company Number: US-BAYER-2017-093293

PATIENT
  Age: 39 Year
  Sex: Female
  Weight: 108.98 kg

DRUGS (6)
  1. MIRALAX [Suspect]
     Active Substance: POLYETHYLENE GLYCOL 3350
     Indication: GASTROINTESTINAL DISORDER
     Dosage: 1 DF, UNK (17G)
     Route: 048
     Dates: start: 20170502, end: 20170502
  2. IRON [IRON] [Concomitant]
     Active Substance: IRON
     Dosage: 325 MG, UNK
     Route: 048
     Dates: start: 20170505
  3. DOCUSATE SODIUM. [Concomitant]
     Active Substance: DOCUSATE SODIUM
     Indication: CONSTIPATION
     Dosage: 100 MG, PRN
     Route: 048
     Dates: start: 20170504
  4. NIFEDIPINE. [Concomitant]
     Active Substance: NIFEDIPINE
     Dosage: 1 DF, BID
     Route: 048
     Dates: start: 20170504
  5. MULTIVITAMIN [Concomitant]
     Active Substance: VITAMINS
     Dosage: 1 DF, QD
     Dates: start: 20170505
  6. DOCUSATE SODIUM. [Concomitant]
     Active Substance: DOCUSATE SODIUM
     Indication: CONSTIPATION
     Dosage: 100 MG, PRN
     Route: 048
     Dates: start: 20170505

REACTIONS (11)
  - Chills [Recovered/Resolved]
  - Urticaria [Recovered/Resolved]
  - Abdominal pain upper [Recovered/Resolved]
  - Headache [Recovered/Resolved]
  - Pre-eclampsia [Not Recovered/Not Resolved]
  - Dyspnoea [Recovered/Resolved]
  - Anaphylactic reaction [None]
  - Hypersensitivity [Recovered/Resolved]
  - Rash [Recovered/Resolved]
  - Blood pressure increased [Recovering/Resolving]
  - Peripheral swelling [Not Recovered/Not Resolved]

NARRATIVE: CASE EVENT DATE: 20170502
